FAERS Safety Report 6056065-7 (Version None)
Quarter: 2009Q1

REPORT INFORMATION
  Report Type: 
  Country: None (occurrence: None)
  Receive Date: 20090128
  Receipt Date: 20090120
  Transmission Date: 20090719
  Serious: Yes (Hospitalization)
  Sender: FDA-Public Use
  Company Number: KP-WATSON-2009-00309

PATIENT
  Age: 19 Year
  Sex: Female

DRUGS (4)
  1. ISONIAZID [Suspect]
     Indication: EXTRAPULMONARY TUBERCULOSIS
     Dosage: UNK
  2. RIFAMPIN [Suspect]
     Indication: EXTRAPULMONARY TUBERCULOSIS
  3. PYRAZINAMIDE [Suspect]
     Indication: EXTRAPULMONARY TUBERCULOSIS
  4. ETHAMBUTOL HYDROCHLORIDE [Suspect]
     Indication: EXTRAPULMONARY TUBERCULOSIS

REACTIONS (1)
  - PARADOXICAL DRUG REACTION [None]
